FAERS Safety Report 11317186 (Version 1)
Quarter: 2015Q3

REPORT INFORMATION
  Report Type: Spontaneous
  Country: US (occurrence: US)
  Receive Date: 20150728
  Receipt Date: 20150728
  Transmission Date: 20151125
  Serious: No
  Sender: FDA-Public Use
  Company Number: US-ASTRAZENECA-2015SE72278

PATIENT
  Age: 27 Year
  Sex: Female
  Weight: 78 kg

DRUGS (3)
  1. NEXIUM 24HR [Suspect]
     Active Substance: ESOMEPRAZOLE MAGNESIUM
     Indication: GASTROOESOPHAGEAL REFLUX DISEASE
     Dosage: 1 DF,DAILY (1 CAPSULE A DAY BY MOUTH, IN THE MORNING)
     Route: 048
     Dates: start: 2015
  2. FLORASTOR [Concomitant]
     Active Substance: SACCHAROMYCES CEREVISIAE
     Indication: PROBIOTIC THERAPY
  3. CRANBERRY. [Concomitant]
     Active Substance: CRANBERRY
     Dosage: 1 DF, 1X/DAY (ON OCCASION 1 PILL A DAY)

REACTIONS (4)
  - Tremor [Not Recovered/Not Resolved]
  - Intentional product use issue [Unknown]
  - Anxiety [Not Recovered/Not Resolved]
  - Nervousness [Not Recovered/Not Resolved]

NARRATIVE: CASE EVENT DATE: 20150715
